FAERS Safety Report 6050161-6 (Version None)
Quarter: 2009Q1

REPORT INFORMATION
  Report Type: 
  Country: None (occurrence: None)
  Receive Date: 20090121
  Receipt Date: 20090121
  Transmission Date: 20090719
  Serious: No
  Sender: FDA-Public Use
  Company Number: None

PATIENT
  Age: 74 Year
  Sex: Female

DRUGS (1)
  1. SUNITINIB [Suspect]
     Indication: VASCULAR OPERATION
     Dosage: 50 MG EVERY DAY PO
     Route: 048
     Dates: start: 20080908, end: 20081208

REACTIONS (1)
  - THROMBOCYTOPENIA [None]
